FAERS Safety Report 4663037-3 (Version None)
Quarter: 2005Q2

REPORT INFORMATION
  Report Type: 
  Country: None (occurrence: None)
  Receive Date: 20050513
  Receipt Date: 20050428
  Transmission Date: 20051028
  Serious: Yes (Hospitalization, Other)
  Sender: FDA-Public Use
  Company Number: ENT 2005-0053

PATIENT
  Age: 71 Year
  Sex: Female

DRUGS (4)
  1. COMTAN [Suspect]
     Indication: PARKINSON'S DISEASE
     Dosage: SEE IMAGE
     Route: 048
     Dates: start: 20030101, end: 20031001
  2. COMTAN [Suspect]
     Indication: PARKINSON'S DISEASE
     Dosage: SEE IMAGE
     Route: 048
     Dates: start: 20040101, end: 20050213
  3. MODOPAR [Concomitant]
  4. FLECAINE [Concomitant]

REACTIONS (8)
  - ANOREXIA [None]
  - CHROMATURIA [None]
  - CYTOLYTIC HEPATITIS [None]
  - HYPERTHERMIA [None]
  - INTERSTITIAL LUNG DISEASE [None]
  - LUNG INFECTION [None]
  - URINARY TRACT INFECTION [None]
  - WEIGHT DECREASED [None]
